FAERS Safety Report 21008012 (Version 3)
Quarter: 2022Q4

REPORT INFORMATION
  Report Type: Report from Study
  Country: CO (occurrence: CO)
  Receive Date: 20220627
  Receipt Date: 20221121
  Transmission Date: 20230113
  Serious: Yes (Other)
  Sender: FDA-Public Use
  Company Number: CO-ABBVIE-22K-036-4445872-00

PATIENT
  Age: 13 Year
  Sex: Female
  Weight: 61 kg

DRUGS (2)
  1. HUMIRA [Suspect]
     Active Substance: ADALIMUMAB
     Indication: Juvenile idiopathic arthritis
     Dosage: STRENGTH 40 MILLIGRAM
     Route: 058
     Dates: start: 20211014, end: 20221022
  2. HUMIRA [Suspect]
     Active Substance: ADALIMUMAB
     Dosage: STRENGTH 40 MILLIGRAM
     Route: 058
     Dates: start: 20220618

REACTIONS (15)
  - Intentional self-injury [Recovering/Resolving]
  - Depression [Not Recovered/Not Resolved]
  - Suicidal ideation [Recovering/Resolving]
  - Immunodeficiency [Recovering/Resolving]
  - Joint injury [Recovering/Resolving]
  - Juvenile idiopathic arthritis [Not Recovered/Not Resolved]
  - Thinking abnormal [Recovering/Resolving]
  - Behaviour disorder [Recovering/Resolving]
  - Influenza [Not Recovered/Not Resolved]
  - Injection site mass [Recovered/Resolved]
  - Pain in extremity [Not Recovered/Not Resolved]
  - Foot fracture [Not Recovered/Not Resolved]
  - Fall [Recovering/Resolving]
  - Skin fissures [Not Recovered/Not Resolved]
  - Application site erythema [Recovered/Resolved]

NARRATIVE: CASE EVENT DATE: 20220601
